FAERS Safety Report 9855824 (Version 1)
Quarter: 2014Q1

REPORT INFORMATION
  Report Type: Spontaneous
  Country: US (occurrence: US)
  Receive Date: 20140130
  Receipt Date: 20140130
  Transmission Date: 20141002
  Serious: No
  Sender: FDA-Public Use
  Company Number: US-MYLANLABS-2013S1024781

PATIENT
  Age: 77 Year
  Sex: Female
  Weight: 79.38 kg

DRUGS (1)
  1. FLUVASTATIN CAPSULES USP [Suspect]
     Indication: BLOOD CHOLESTEROL INCREASED
     Route: 048
     Dates: start: 20131008, end: 20131022

REACTIONS (1)
  - Muscle spasms [Recovered/Resolved]
